FAERS Safety Report 10644635 (Version 1)
Quarter: 2014Q4

REPORT INFORMATION
  Report Type: Spontaneous
  Country: FR (occurrence: FR)
  Receive Date: 20141210
  Receipt Date: 20141210
  Transmission Date: 20150529
  Serious: Yes (Death, Other)
  Sender: FDA-Public Use
  Company Number: FR-009507513-1412FRA001902

PATIENT
  Sex: Male

DRUGS (4)
  1. DIFFU-K [Concomitant]
     Active Substance: POTASSIUM CHLORIDE
  2. KARDEGIC [Concomitant]
     Active Substance: ASPIRIN LYSINE
  3. VENTOLIN [Concomitant]
     Active Substance: ALBUTEROL SULFATE
  4. CELESTENE [Suspect]
     Active Substance: BETAMETHASONE
     Indication: ASTHMA
     Dosage: UNK
     Route: 048

REACTIONS (1)
  - Lung neoplasm malignant [Fatal]
